FAERS Safety Report 10974231 (Version 2)
Quarter: 2015Q3

REPORT INFORMATION
  Report Type: Spontaneous
  Country: IT (occurrence: IT)
  Receive Date: 20150401
  Receipt Date: 20150723
  Transmission Date: 20151125
  Serious: Yes (Hospitalization)
  Sender: FDA-Public Use
  Company Number: IT-NOVOPROD-439530

PATIENT
  Age: 74 Year
  Sex: Male

DRUGS (5)
  1. LANTUS [Concomitant]
     Active Substance: INSULIN GLARGINE
     Dosage: UNK
     Route: 058
  2. FLUCONAZOL [Concomitant]
     Active Substance: FLUCONAZOLE
     Dosage: UNK
     Route: 065
  3. ACTRAPID [Suspect]
     Active Substance: INSULIN HUMAN
     Indication: DIABETES MELLITUS
     Dosage: THREE TIMES A DAY
     Route: 058
  4. COUMADIN [Concomitant]
     Active Substance: WARFARIN SODIUM
     Dosage: UNK
     Route: 065
  5. ACTRAPID [Suspect]
     Active Substance: INSULIN HUMAN
     Dosage: 10 IU SINGLE DOSE
     Route: 058
     Dates: start: 20120112

REACTIONS (2)
  - Sopor [Recovered/Resolved]
  - Hypoglycaemia [Recovered/Resolved]

NARRATIVE: CASE EVENT DATE: 20120112
